FAERS Safety Report 25534210 (Version 1)
Quarter: 2025Q3

REPORT INFORMATION
  Report Type: Spontaneous
  Country: EU (occurrence: EU)
  Receive Date: 20250709
  Receipt Date: 20250709
  Transmission Date: 20251021
  Serious: Yes (Death, Hospitalization, Other)
  Sender: SANDOZ
  Company Number: EU-002147023-PHHY2019DE221422

PATIENT
  Age: 67 Year
  Sex: Female
  Weight: 84 kg

DRUGS (7)
  1. AVASTIN [Suspect]
     Active Substance: BEVACIZUMAB
     Indication: Breast cancer metastatic
     Dosage: DAILY DOSE: 15 MG/KG MILLIGRAM(S) /KILOGRAM EVERY 3 WEEK
     Route: 065
     Dates: start: 20100827, end: 20101008
  2. BEVACIZUMAB [Suspect]
     Active Substance: BEVACIZUMAB
     Indication: Breast cancer metastatic
     Dosage: 15 MG/KG, Q3W
     Route: 042
     Dates: start: 20100827, end: 20110105
  3. BEVACIZUMAB [Suspect]
     Active Substance: BEVACIZUMAB
     Dosage: DOSE REDUCED TO 75% OF ORIGINAL DOSE
     Route: 042
     Dates: start: 20101116, end: 20110105
  4. DOCETAXEL [Suspect]
     Active Substance: DOCETAXEL
     Dosage: DOSE REDUCED, 75% FROM ORIGINAL DOSE
     Route: 042
     Dates: start: 20101116, end: 20110105
  5. DOCETAXEL [Suspect]
     Active Substance: DOCETAXEL
     Indication: Breast cancer metastatic
     Dosage: DAILY DOSE: 100 MG/KG MILLIGRAM(S) /KILOGRAM EVERY 3 WEEK
     Route: 042
     Dates: start: 20100827, end: 20101008
  6. ZOMETA [Suspect]
     Active Substance: ZOLEDRONIC ACID
     Dosage: 4 MG, UNK
     Route: 042
     Dates: start: 20100827, end: 20110105
  7. ZOMETA [Suspect]
     Active Substance: ZOLEDRONIC ACID
     Indication: Breast cancer metastatic
     Route: 042
     Dates: start: 2008, end: 201008

REACTIONS (6)
  - Gallbladder rupture [Fatal]
  - Septic shock [Fatal]
  - Acute cholecystitis necrotic [Fatal]
  - Cholelithiasis [Recovered/Resolved]
  - General physical health deterioration [Not Recovered/Not Resolved]
  - Cholecystitis [Recovering/Resolving]

NARRATIVE: CASE EVENT DATE: 20101101
